FAERS Safety Report 6377278-0 (Version None)
Quarter: 2009Q3

REPORT INFORMATION
  Report Type: 
  Country: None (occurrence: None)
  Receive Date: 20090924
  Receipt Date: 20090924
  Transmission Date: 20100115
  Serious: Yes (Death, Hospitalization, Other)
  Sender: FDA-Public Use
  Company Number: None

PATIENT
  Age: 54 Year
  Sex: Female
  Weight: 55.8 kg

DRUGS (9)
  1. VELCADE [Suspect]
     Indication: MULTIPLE MYELOMA
     Dosage: DAYS 1,8,15,22,19 Q 35
     Dates: start: 20090706, end: 20090916
  2. BORTEZOMIB [Suspect]
     Indication: MULTIPLE MYELOMA
     Dosage: DAYS 1,8,15,22 Q35
     Dates: start: 20090706, end: 20090916
  3. AMBIEN [Concomitant]
  4. NEUPOGEN [Concomitant]
  5. LEVOFLOXACIN [Concomitant]
  6. OXYCODONE [Concomitant]
  7. VALACYCLOVIR [Concomitant]
  8. LIPITOR [Concomitant]
  9. TYLENOL (CAPLET) [Concomitant]

REACTIONS (11)
  - CARDIOVASCULAR DISORDER [None]
  - CHEYNE-STOKES RESPIRATION [None]
  - ENCEPHALOPATHY [None]
  - FEBRILE NEUTROPENIA [None]
  - GENERAL PHYSICAL HEALTH DETERIORATION [None]
  - HYPERKALAEMIA [None]
  - HYPERPHOSPHATAEMIA [None]
  - MULTIPLE MYELOMA [None]
  - PLASMA CELL DISORDER [None]
  - RENAL FAILURE ACUTE [None]
  - SEPSIS [None]
